FAERS Safety Report 20759941 (Version 2)
Quarter: 2022Q2

REPORT INFORMATION
  Report Type: Report from Study
  Country: US (occurrence: US)
  Receive Date: 20220427
  Receipt Date: 20220523
  Transmission Date: 20220721
  Serious: Yes (Hospitalization)
  Sender: FDA-Public Use
  Company Number: US-ABBVIE-22K-163-4365440-00

PATIENT
  Sex: Female
  Weight: 52.210 kg

DRUGS (3)
  1. DUOPA [Suspect]
     Active Substance: CARBIDOPA\LEVODOPA
     Indication: Product used for unknown indication
     Route: 050
     Dates: start: 20191120
  2. DUOPA [Suspect]
     Active Substance: CARBIDOPA\LEVODOPA
  3. GOCOVRI [Concomitant]
     Active Substance: AMANTADINE
     Indication: Dyskinesia
     Route: 065

REACTIONS (6)
  - Loss of consciousness [Recovered/Resolved]
  - Bacterial infection [Recovered/Resolved]
  - Device dislocation [Not Recovered/Not Resolved]
  - Weight decreased [Not Recovered/Not Resolved]
  - General physical condition abnormal [Unknown]
  - Malaise [Unknown]

NARRATIVE: CASE EVENT DATE: 20210101
